FAERS Safety Report 5451283-0 (Version None)
Quarter: 2007Q3

REPORT INFORMATION
  Report Type: 
  Country: None (occurrence: None)
  Receive Date: 20070913
  Receipt Date: 20070905
  Transmission Date: 20080115
  Serious: Yes (Other)
  Sender: FDA-Public Use
  Company Number: PHBS2007JP11151

PATIENT
  Age: 51 Year
  Sex: Male

DRUGS (10)
  1. GLEEVEC [Suspect]
     Indication: ACUTE LYMPHOCYTIC LEUKAEMIA
     Dosage: 400 MG/D
     Route: 048
     Dates: start: 20060505, end: 20060518
  2. GLEEVEC [Suspect]
     Dosage: 400 MG/D
     Route: 048
     Dates: start: 20060626, end: 20060705
  3. GLEEVEC [Suspect]
     Dosage: 600 MG/D
     Route: 048
     Dates: start: 20060719, end: 20060724
  4. GLEEVEC [Suspect]
     Dosage: 400 MG/D
     Route: 048
     Dates: start: 20060725, end: 20060727
  5. GLEEVEC [Suspect]
     Dosage: 400 MG/D
     Route: 048
     Dates: start: 20060912, end: 20061011
  6. GLEEVEC [Suspect]
     Dosage: 600 MG/D
     Route: 048
     Dates: start: 20061012
  7. NEORAL [Concomitant]
     Route: 048
     Dates: start: 20060821, end: 20061011
  8. PREDNISOLONE [Concomitant]
     Dosage: 4 MG/D
     Route: 048
     Dates: start: 20061201
  9. PREDNISOLONE [Concomitant]
     Dosage: 0.5 MG/D
     Route: 048
  10. HEMATOPOETIC PROGENITOR CELLS HUMAN [Concomitant]
     Dosage: ALLOGENIC TRANSPLANT
     Route: 065
     Dates: start: 20060822

REACTIONS (2)
  - LEUKOENCEPHALOMYELITIS [None]
  - PROGRESSIVE MULTIFOCAL LEUKOENCEPHALOPATHY [None]
